FAERS Safety Report 11631862 (Version 2)
Quarter: 2016Q2

REPORT INFORMATION
  Report Type: Spontaneous
  Country: GB (occurrence: GB)
  Receive Date: 20151015
  Receipt Date: 20160624
  Transmission Date: 20160815
  Serious: Yes (Disabling)
  Sender: FDA-Public Use
  Company Number: GB-ACCORD-034313

PATIENT
  Age: 45 Year
  Sex: Male
  Weight: 105 kg

DRUGS (5)
  1. MYCOPHENOLIC ACID. [Suspect]
     Active Substance: MYCOPHENOLIC ACID
     Indication: LIVER TRANSPLANT
     Dosage: ALSO RECEIVED REDUCED DOSE OF MYCOPHENOLATE 750 MG TWICE DAILY
     Route: 048
     Dates: start: 20080901, end: 20140502
  2. AMITRIPTYLINE [Concomitant]
     Active Substance: AMITRIPTYLINE
  3. ACETYLSALICYLIC ACID [Concomitant]
     Active Substance: ASPIRIN
  4. NEORAL [Concomitant]
     Active Substance: CYCLOSPORINE
  5. BISOPROLOL [Concomitant]
     Active Substance: BISOPROLOL

REACTIONS (2)
  - Respiratory tract infection [Unknown]
  - Hypogammaglobulinaemia [Not Recovered/Not Resolved]

NARRATIVE: CASE EVENT DATE: 201312
